FAERS Safety Report 14200327 (Version 1)
Quarter: 2017Q4

REPORT INFORMATION
  Report Type: Spontaneous
  Country: US (occurrence: US)
  Receive Date: 20171117
  Receipt Date: 20171117
  Transmission Date: 20180321
  Serious: Yes (Other)
  Sender: FDA-Public Use
  Company Number: US-LUPIN PHARMACEUTICALS INC.-2017-06582

PATIENT
  Age: 73 Year
  Sex: Female
  Weight: 55.78 kg

DRUGS (9)
  1. PLAQUENIL                          /00072602/ [Concomitant]
     Active Substance: HYDROXYCHLOROQUINE DIPHOSPHATE
     Indication: LICHEN PLANUS
     Dosage: UNK UNK, BID
     Route: 048
  2. CEFUROXIME AXETIL TABLETS USP, 500 MG [Suspect]
     Active Substance: CEFUROXIME AXETIL
     Indication: BRONCHITIS CHRONIC
     Dosage: 500 MG, BID
     Route: 048
     Dates: start: 20171031
  3. CEFUROXIME AXETIL TABLETS USP, 500 MG [Suspect]
     Active Substance: CEFUROXIME AXETIL
     Indication: BACTERIAL INFECTION
  4. ADVAIR HFA [Concomitant]
     Active Substance: FLUTICASONE PROPIONATE\SALMETEROL XINAFOATE
     Indication: ASTHMA
     Dosage: 1 PUFF, BID
     Route: 055
  5. SINGULAIR [Concomitant]
     Active Substance: MONTELUKAST SODIUM
     Indication: ASTHMA
     Dosage: UNK UNK, QD
     Route: 048
  6. NASONEX [Concomitant]
     Active Substance: MOMETASONE FUROATE
     Indication: HYPERSENSITIVITY
     Dosage: 1 SPRAY, QD
     Route: 045
  7. VAGIFEM [Concomitant]
     Active Substance: ESTRADIOL
     Indication: PROPHYLAXIS URINARY TRACT INFECTION
     Dosage: 10 MCG, TWICE A WEEK
     Route: 067
  8. PROAIR HFA [Concomitant]
     Active Substance: ALBUTEROL SULFATE
     Indication: ASTHMA
     Dosage: 1 PUFF, PRN
     Route: 055
  9. FLUOCINONIDE. [Concomitant]
     Active Substance: FLUOCINONIDE
     Indication: LICHEN PLANUS
     Dosage: 0.05 %, BID
     Route: 061

REACTIONS (5)
  - Retching [Not Recovered/Not Resolved]
  - Coeliac disease [Unknown]
  - Abdominal pain upper [Not Recovered/Not Resolved]
  - Eructation [Not Recovered/Not Resolved]
  - Mucous stools [Not Recovered/Not Resolved]

NARRATIVE: CASE EVENT DATE: 20171031
